FAERS Safety Report 12492856 (Version 2)
Quarter: 2017Q2

REPORT INFORMATION
  Report Type: Spontaneous
  Country: US (occurrence: US)
  Receive Date: 20160623
  Receipt Date: 20170515
  Transmission Date: 20170830
  Serious: No
  Sender: FDA-Public Use
  Company Number: US-PFIZER INC-2016291222

PATIENT
  Age: 79 Year
  Sex: Female

DRUGS (1)
  1. ADVIL [Suspect]
     Active Substance: IBUPROFEN
     Indication: BACK PAIN
     Dosage: 200 MG, 2X/DAY
     Route: 048
     Dates: end: 20160605

REACTIONS (7)
  - Dysphagia [Unknown]
  - Product use complaint [Unknown]
  - Abdominal discomfort [Unknown]
  - Drug ineffective [Unknown]
  - Burning sensation [Recovering/Resolving]
  - Oral discomfort [Recovering/Resolving]
  - Product size issue [Unknown]

NARRATIVE: CASE EVENT DATE: 20160605
